FAERS Safety Report 9337353 (Version 7)
Quarter: 2013Q3

REPORT INFORMATION
  Report Type: Report from Study
  Country: US (occurrence: US)
  Receive Date: 20130607
  Receipt Date: 20130911
  Transmission Date: 20140515
  Serious: Yes (Other)
  Sender: FDA-Public Use
  Company Number: PHHY2013US056713

PATIENT
  Age: 62 Year
  Sex: Female
  Weight: 78 kg

DRUGS (6)
  1. GILENYA [Suspect]
     Indication: MULTIPLE SCLEROSIS
     Dosage: 0.5 MG, QD
     Route: 048
     Dates: start: 20130219
  2. DITROPAN [Concomitant]
  3. EVISTA [Concomitant]
  4. LYRICA [Concomitant]
     Indication: PAIN
     Dosage: 1 DF, TID
     Route: 048
  5. GABAPENTIN [Concomitant]
     Dosage: 1 DF, TID
     Route: 048
  6. BACLOFEN [Concomitant]
     Indication: MUSCLE SPASTICITY
     Dosage: 2 MG, 2-2-1
     Route: 048

REACTIONS (5)
  - Eye haemorrhage [Unknown]
  - Fatigue [Recovered/Resolved]
  - Gait disturbance [Recovering/Resolving]
  - Asthenia [Not Recovered/Not Resolved]
  - Blood pressure increased [Recovering/Resolving]
